FAERS Safety Report 14765388 (Version 1)
Quarter: 2018Q2

REPORT INFORMATION
  Report Type: Report from Study
  Country: FR (occurrence: FR)
  Receive Date: 20180416
  Receipt Date: 20180416
  Transmission Date: 20180711
  Serious: Yes (Other)
  Sender: FDA-Public Use
  Company Number: FR-PFIZER INC-2018148961

PATIENT

DRUGS (1)
  1. IRINOTECAN HCL [Suspect]
     Active Substance: IRINOTECAN HYDROCHLORIDE
     Indication: MYELODYSPLASTIC SYNDROME
     Dosage: 200 MG/M2, UNK,(OVER 90 MIN, EVERY 2 WEEKS FOR A TOTAL OF FOUR COURSES)
     Route: 042

REACTIONS (1)
  - Systemic candida [Unknown]
